FAERS Safety Report 9401859 (Version 3)
Quarter: 2013Q4

REPORT INFORMATION
  Report Type: Spontaneous
  Country: US (occurrence: US)
  Receive Date: 20130716
  Receipt Date: 20131111
  Transmission Date: 20140711
  Serious: Yes (Other)
  Sender: FDA-Public Use
  Company Number: US-JNJFOC-20130705645

PATIENT
  Sex: Female
  Weight: 66.23 kg

DRUGS (6)
  1. ELMIRON [Suspect]
     Indication: CYSTITIS INTERSTITIAL
     Route: 048
     Dates: start: 201203
  2. DITROPAN ER [Concomitant]
     Indication: HYPERTONIC BLADDER
     Route: 048
     Dates: start: 201205
  3. LIBRAX [Concomitant]
     Indication: IRRITABLE BOWEL SYNDROME
     Route: 048
  4. DEPAKOTE [Concomitant]
     Indication: MIGRAINE
     Route: 065
     Dates: start: 2007, end: 201304
  5. MULTIVITAMINS [Concomitant]
     Indication: HYPOVITAMINOSIS
     Route: 065
  6. VITAMIN D3 [Concomitant]
     Indication: HYPOVITAMINOSIS
     Route: 065
     Dates: start: 201205, end: 201305

REACTIONS (1)
  - Macular degeneration [Not Recovered/Not Resolved]
